FAERS Safety Report 18656324 (Version 4)
Quarter: 2021Q2

REPORT INFORMATION
  Report Type: Other
  Country: US (occurrence: US)
  Receive Date: 20201223
  Receipt Date: 20210414
  Transmission Date: 20210717
  Serious: Yes (Other)
  Sender: FDA-Public Use
  Company Number: US-ACORDA-ACO_167294_2020

PATIENT
  Age: 93 Year
  Sex: Male

DRUGS (3)
  1. INBRIJA [Suspect]
     Active Substance: LEVODOPA
     Indication: ON AND OFF PHENOMENON
  2. INBRIJA [Suspect]
     Active Substance: LEVODOPA
     Indication: PARKINSON^S DISEASE
     Dosage: 2 CAPSULES, PRN (NOT TO EXCEED 5 DOSES A DAY)
     Dates: start: 202011
  3. CARBIDOPA AND LEVODOPA [Concomitant]
     Active Substance: CARBIDOPA\LEVODOPA
     Indication: PRODUCT USED FOR UNKNOWN INDICATION
     Dosage: 25/100 MG; 0.5 TO 1 TABLET 4 TIMES A DAY
     Route: 065

REACTIONS (6)
  - Choking [Unknown]
  - Loss of consciousness [Unknown]
  - Drug ineffective [Unknown]
  - Product residue present [Unknown]
  - Therapeutic product effect variable [Unknown]
  - Cough [Unknown]

NARRATIVE: CASE EVENT DATE: 20201217
